FAERS Safety Report 11349041 (Version 3)
Quarter: 2016Q2

REPORT INFORMATION
  Report Type: Spontaneous
  Country: US (occurrence: US)
  Receive Date: 20150807
  Receipt Date: 20160607
  Transmission Date: 20160815
  Serious: Yes (Hospitalization, Other)
  Sender: FDA-Public Use
  Company Number: US-PFIZER INC-2015258820

PATIENT
  Age: 49 Year
  Sex: Female
  Weight: 60 kg

DRUGS (14)
  1. NEURONTIN [Suspect]
     Active Substance: GABAPENTIN
     Indication: FIBROMYALGIA
     Dosage: 1200 MG, DAILY
  2. NEURONTIN [Suspect]
     Active Substance: GABAPENTIN
     Indication: NERVOUS SYSTEM DISORDER
     Dosage: 300 MG, 3X/DAY
  3. LYRICA [Suspect]
     Active Substance: PREGABALIN
     Indication: FIBROMYALGIA
     Dosage: UNK
  4. NEURONTIN [Suspect]
     Active Substance: GABAPENTIN
     Indication: BIPOLAR DISORDER
  5. NEURONTIN [Suspect]
     Active Substance: GABAPENTIN
     Indication: ARTHROPATHY
  6. LYRICA [Suspect]
     Active Substance: PREGABALIN
     Indication: NERVOUS SYSTEM DISORDER
  7. VISTARIL [Concomitant]
     Active Substance: HYDROXYZINE PAMOATE
     Dosage: 50 MG, THREE TIMES A DAY AS NEEDED
  8. NEURONTIN [Suspect]
     Active Substance: GABAPENTIN
     Indication: SEIZURE
  9. SEROQUEL XR [Concomitant]
     Active Substance: QUETIAPINE FUMARATE
     Dosage: 300 MG, 2 TIMES AT NIGHT SOMETIMES HALF IN MORNING
  10. LYRICA [Suspect]
     Active Substance: PREGABALIN
     Indication: ARTHROPATHY
  11. PROZAC [Concomitant]
     Active Substance: FLUOXETINE HYDROCHLORIDE
     Dosage: 60 MG, 2X/DAY
  12. NEURONTIN [Suspect]
     Active Substance: GABAPENTIN
     Indication: RESTLESS LEGS SYNDROME
  13. LYRICA [Suspect]
     Active Substance: PREGABALIN
     Indication: RESTLESS LEGS SYNDROME
  14. KLONOPIN [Concomitant]
     Active Substance: CLONAZEPAM
     Dosage: 0.5 MG, 2X/DAY

REACTIONS (11)
  - Lung disorder [Recovered/Resolved]
  - Pneumonia [Recovered/Resolved]
  - Pneumonia staphylococcal [Recovered/Resolved]
  - Staphylococcal sepsis [Recovered/Resolved]
  - Road traffic accident [Unknown]
  - Respiratory arrest [Unknown]
  - Schizophrenia [Unknown]
  - Rib fracture [Unknown]
  - Back injury [Unknown]
  - Agitation [Unknown]
  - Drug tolerance [Unknown]

NARRATIVE: CASE EVENT DATE: 20150424
